FAERS Safety Report 8397914-7 (Version None)
Quarter: 2012Q2

REPORT INFORMATION
  Report Type: 
  Country: None (occurrence: None)
  Receive Date: 20120531
  Receipt Date: 20120528
  Transmission Date: 20120825
  Serious: Yes (Other)
  Sender: FDA-Public Use
  Company Number: PHHY2011BR109983

PATIENT
  Age: 55 Year
  Sex: Male
  Weight: 75 kg

DRUGS (6)
  1. RANITIDINE HCL [Concomitant]
     Indication: GASTRIC DISORDER
     Dosage: 1 TABLET (150 MG) DAILY
     Route: 048
     Dates: start: 20120101
  2. SOMALGIN [Concomitant]
     Indication: COAGULOPATHY
     Dosage: 1 TABLET (100 MG) A DAY
     Route: 048
     Dates: start: 20120101
  3. ROSUVASTATIN [Concomitant]
     Indication: ANGIOPATHY
     Dosage: 1 TABLET (200 MG) A DAY
     Route: 048
     Dates: start: 20120101
  4. DIOVAN [Suspect]
     Indication: HYPERTENSION
     Dosage: ONE TABLET (40 MG), DAILY
     Route: 048
  5. DIOVAN [Suspect]
     Dosage: 80 MG, UNK
  6. CLOPIDOGREL [Concomitant]
     Indication: ANTIPLATELET THERAPY
     Dosage: 1 TABLET (75 MG) A DAY
     Route: 048
     Dates: start: 20120101

REACTIONS (10)
  - MYOCARDIAL INFARCTION [None]
  - ARTERIOSCLEROSIS [None]
  - INCORRECT DOSE ADMINISTERED [None]
  - GASTRIC DISORDER [None]
  - OVERWEIGHT [None]
  - BLOOD PRESSURE DECREASED [None]
  - MALAISE [None]
  - HYPOTENSION [None]
  - DYSPNOEA [None]
  - DYSPHAGIA [None]
